FAERS Safety Report 22004252 (Version 2)
Quarter: 2023Q1

REPORT INFORMATION
  Report Type: Spontaneous
  Country: US (occurrence: US)
  Receive Date: 20230217
  Receipt Date: 20230227
  Transmission Date: 20230417
  Serious: No
  Sender: FDA-Public Use
  Company Number: US-BRISTOL-MYERS SQUIBB COMPANY-2023-022684

PATIENT
  Age: 80 Year
  Sex: Female
  Weight: 51.26 kg

DRUGS (1)
  1. POMALYST [Suspect]
     Active Substance: POMALIDOMIDE
     Indication: Plasma cell myeloma
     Route: 048
     Dates: start: 20230131

REACTIONS (3)
  - Blood potassium decreased [Not Recovered/Not Resolved]
  - Full blood count decreased [Unknown]
  - Off label use [Unknown]
